FAERS Safety Report 10241447 (Version 1)
Quarter: 2014Q2

REPORT INFORMATION
  Report Type: Spontaneous
  Country: BR (occurrence: BR)
  Receive Date: 20140617
  Receipt Date: 20140617
  Transmission Date: 20141212
  Serious: Yes (Hospitalization)
  Sender: FDA-Public Use
  Company Number: BR-SA-2014SA075015

PATIENT
  Sex: Female

DRUGS (4)
  1. LANTUS [Suspect]
     Indication: DIABETES MELLITUS
     Dosage: 3ML CARTRIDGE
     Route: 058
  2. APIDRA SOLOSTAR [Suspect]
     Indication: DIABETES MELLITUS
     Route: 065
  3. INSULIN PEN NOS [Concomitant]
     Indication: DEVICE THERAPY
  4. SOLOSTAR [Concomitant]

REACTIONS (1)
  - Fall [Unknown]
